FAERS Safety Report 5242440-7 (Version None)
Quarter: 2007Q1

REPORT INFORMATION
  Report Type: 
  Country: None (occurrence: None)
  Receive Date: 20070214
  Receipt Date: 20070129
  Transmission Date: 20070707
  Serious: Yes (Hospitalization)
  Sender: FDA-Public Use
  Company Number: MEDI-0005259

PATIENT
  Age: 3 Month
  Sex: Male
  Weight: 4.64 kg

DRUGS (2)
  1. SYNAGIS [Suspect]
     Indication: ANTIVIRAL PROPHYLAXIS
     Dosage: 69.6 MG, INTRAMUSCULAR
     Route: 030
     Dates: start: 20061208, end: 20061208
  2. SYNAGIS [Suspect]
     Indication: ANTIVIRAL PROPHYLAXIS
     Dosage: 69.6 MG, INTRAMUSCULAR
     Route: 030
     Dates: start: 20070107

REACTIONS (4)
  - BRONCHIOLITIS [None]
  - DEHYDRATION [None]
  - RESPIRATORY SYNCYTIAL VIRUS INFECTION [None]
  - RHINORRHOEA [None]
